FAERS Safety Report 25915615 (Version 2)
Quarter: 2025Q4

REPORT INFORMATION
  Report Type: Spontaneous
  Country: US (occurrence: US)
  Receive Date: 20251013
  Receipt Date: 20251117
  Transmission Date: 20260117
  Serious: Yes (Other)
  Sender: CSL BEHRING
  Company Number: US-BEH-2025221521

PATIENT
  Age: 35 Year
  Sex: Female

DRUGS (8)
  1. ANDEMBRY [Suspect]
     Active Substance: GARADACIMAB-GXII
     Indication: Hereditary angioedema
     Dosage: INJECT 1 PEN UNDER THE SKIN ON DAY 1
     Route: 058
     Dates: start: 202509
  2. ANDEMBRY [Suspect]
     Active Substance: GARADACIMAB-GXII
     Indication: Prophylaxis
     Dosage: INJECT 1 PEN EVERY MONTH THEREAFTER
     Route: 058
     Dates: start: 202509
  3. ANDEMBRY [Suspect]
     Active Substance: GARADACIMAB-GXII
     Dosage: 200 MG, QMT
     Route: 058
     Dates: start: 202509
  4. HAEGARDA [Suspect]
     Active Substance: HUMAN C1-ESTERASE INHIBITOR
     Route: 065
  5. SODIUM CHLORIDE [Concomitant]
     Active Substance: SODIUM CHLORIDE
     Dosage: STERILE F (10ML
  6. STERILE WATER [Concomitant]
     Active Substance: WATER
     Dosage: SDV (50 ML)
  7. SODIUM CHLORIDE [Concomitant]
     Active Substance: SODIUM CHLORIDE
     Dosage: FLUSH 5 ML
  8. HEPARIN [Concomitant]
     Active Substance: HEPARIN SODIUM
     Dosage: L/F SYR (5ML/SYR),

REACTIONS (4)
  - Hereditary angioedema [Unknown]
  - Hereditary angioedema [Unknown]
  - Hereditary angioedema [Unknown]
  - Hereditary angioedema [Unknown]

NARRATIVE: CASE EVENT DATE: 20250912
